FAERS Safety Report 6705973-X (Version None)
Quarter: 2010Q2

REPORT INFORMATION
  Report Type: 
  Country: None (occurrence: None)
  Receive Date: 20100423
  Receipt Date: 20100108
  Transmission Date: 20101027
  Serious: No
  Sender: FDA-Public Use
  Company Number: ALL1-2010-00104

PATIENT
  Age: 10 Year
  Sex: Female
  Weight: 22.7 kg

DRUGS (6)
  1. VYVANSE [Suspect]
     Indication: DRUG USE FOR UNKNOWN INDICATION
     Dosage: 40 MG, 1X/DAY:QD, ORAL, 30 MG, 1X/DAY:QD, ORAL
     Route: 048
     Dates: start: 20091220, end: 20091228
  2. VYVANSE [Suspect]
     Indication: DRUG USE FOR UNKNOWN INDICATION
     Dosage: 40 MG, 1X/DAY:QD, ORAL, 30 MG, 1X/DAY:QD, ORAL
     Route: 048
     Dates: start: 20090701
  3. PEDIASURE (CARBOHYDRATES NOS, FATS NOS, MINDRALS NOS, PROTEIN, VITAMIN [Concomitant]
  4. PROTIEN SUPPLEMENTS [Concomitant]
  5. FLAXSEED OIL (LINUM USITATISSIMUM SEED OIL) [Concomitant]
  6. CELEXA [Concomitant]

REACTIONS (6)
  - ABDOMINAL PAIN UPPER [None]
  - DECREASED APPETITE [None]
  - DIARRHOEA [None]
  - DRUG DISPENSING ERROR [None]
  - DRUG INEFFECTIVE [None]
  - FLATULENCE [None]
